FAERS Safety Report 11062964 (Version 3)
Quarter: 2020Q1

REPORT INFORMATION
  Report Type: Report from Study
  Country: BR (occurrence: BR)
  Receive Date: 20150424
  Receipt Date: 20200210
  Transmission Date: 20200409
  Serious: Yes (Hospitalization, Other)
  Sender: FDA-Public Use
  Company Number: PHHY2015BR047709

PATIENT
  Age: 70 Year
  Sex: Male
  Weight: 61 kg

DRUGS (5)
  1. LOSARTAN. [Concomitant]
     Active Substance: LOSARTAN
     Indication: HYPERTENSION
     Dosage: 50 MG, BID (2 TABLETS OF 50MG)
     Route: 048
     Dates: start: 2011
  2. MAREVAN [Concomitant]
     Active Substance: WARFARIN SODIUM
     Indication: CARDIOMYOPATHY
     Dosage: UNK, QD (A QUARTER OF A 5MG TABLET ON SUNDAY, MONDAY, WEDNESDAY AND FRIDAY, AND HALF 5MG TABLET ON T
     Route: 048
     Dates: start: 2011
  3. GLIFAGE [Concomitant]
     Active Substance: METFORMIN HYDROCHLORIDE
     Indication: DIABETES MELLITUS
     Dosage: 1 DF, QD
     Route: 048
     Dates: start: 2011
  4. SANDOSTATIN LAR DEPOT [Suspect]
     Active Substance: OCTREOTIDE ACETATE
     Indication: ACROMEGALY
     Dosage: 30 MG, QMO (30 MG (1 AMPOULE), EVERY 30 DAYS)
     Route: 030
     Dates: start: 201104
  5. LIPITOR [Concomitant]
     Active Substance: ATORVASTATIN CALCIUM
     Indication: BLOOD CHOLESTEROL INCREASED
     Dosage: 40 MG, QD
     Route: 048
     Dates: start: 2011

REACTIONS (9)
  - Headache [Recovered/Resolved]
  - Headache [Recovered/Resolved]
  - Cardiac disorder [Not Recovered/Not Resolved]
  - Brain neoplasm [Not Recovered/Not Resolved]
  - Blood cholesterol increased [Not Recovered/Not Resolved]
  - Contusion [Recovering/Resolving]
  - Haematoma [Recovered/Resolved]
  - Headache [Recovered/Resolved]
  - Dizziness [Recovered/Resolved]

NARRATIVE: CASE EVENT DATE: 201812
